FAERS Safety Report 5857007-7 (Version None)
Quarter: 2008Q3

REPORT INFORMATION
  Report Type: 
  Country: None (occurrence: None)
  Receive Date: 20080825
  Receipt Date: 20080819
  Transmission Date: 20090109
  Serious: Yes (Hospitalization, Disabling)
  Sender: FDA-Public Use
  Company Number: US-BOEHRINGER INGELHEIM GMBH, GERMANY-2008-BP-10012BP

PATIENT
  Sex: Male
  Weight: 66 kg

DRUGS (13)
  1. MIRAPEX [Suspect]
     Indication: PARKINSON'S DISEASE
     Route: 048
     Dates: start: 20080501
  2. NEUPRO [Suspect]
     Indication: PARKINSON'S DISEASE
     Route: 062
     Dates: end: 20080503
  3. CARBIDOPA AND LEVODOPA [Concomitant]
  4. GLYBURIDE [Concomitant]
  5. ACTOS [Concomitant]
  6. JANUVIA [Concomitant]
  7. AVODART [Concomitant]
  8. CYMBALTA [Concomitant]
  9. ASPIRIN [Concomitant]
  10. SENOKOT [Concomitant]
  11. SIMVASTATIN [Concomitant]
  12. LIDODERM [Concomitant]
  13. LANTUS [Concomitant]
     Dates: start: 20080613

REACTIONS (6)
  - ABASIA [None]
  - ACTIVITIES OF DAILY LIVING IMPAIRED [None]
  - DYSPHAGIA [None]
  - FALL [None]
  - FRACTURE [None]
  - HALLUCINATION, VISUAL [None]
